FAERS Safety Report 4367514-4 (Version None)
Quarter: 2004Q2

REPORT INFORMATION
  Report Type: 
  Country: None (occurrence: None)
  Receive Date: 20040517
  Receipt Date: 20040428
  Transmission Date: 20050107
  Serious: Yes (Other)
  Sender: FDA-Public Use
  Company Number: 500296

PATIENT
  Age: 6 Year
  Sex: Female

DRUGS (9)
  1. GAMMAGARD [Suspect]
     Indication: ACQUIRED IMMUNODEFICIENCY SYNDROME
     Dosage: 6 GM; ONCE; INTRAVENOUS
     Route: 042
     Dates: start: 19940221, end: 19940221
  2. INTRAGLOBIN (IMMUNOGLOBULIN HUMAN NORMAL) [Suspect]
     Indication: ACQUIRED IMMUNODEFICIENCY SYNDROME
     Dosage: CONTINUOUS
     Dates: start: 19940321, end: 19940524
  3. INTRAGLOBIN (IMMUNOGLOBULIN HUMAN NORMAL) [Suspect]
  4. INTRAGLOBIN (IMMUNOGLOBULIN HUMAN NORMAL) [Suspect]
  5. INTRAGLOBIN (IMMUNOGLOBULIN HUMAN NORMAL) [Suspect]
  6. INTRAGLOBIN (IMMUNOGLOBULIN HUMAN NORMAL) [Suspect]
  7. INTRAGLOBIN (IMMUNOGLOBULIN HUMAN NORMAL) [Suspect]
  8. INTRAGLOBIN (IMMUNOGLOBULIN HUMAN NORMAL) [Suspect]
  9. INTRAGLOBIN (IMMUNOGLOBULIN HUMAN NORMAL) [Suspect]

REACTIONS (2)
  - HEPATITIS C [None]
  - PHARMACEUTICAL PRODUCT COMPLAINT [None]
